FAERS Safety Report 21439323 (Version 1)
Quarter: 2022Q4

REPORT INFORMATION
  Report Type: Spontaneous
  Country: DE (occurrence: DE)
  Receive Date: 20221011
  Receipt Date: 20221011
  Transmission Date: 20230113
  Serious: No
  Sender: FDA-Public Use
  Company Number: DE-PFIZER INC-PV202200056415

PATIENT

DRUGS (1)
  1. DALTEPARIN SODIUM [Suspect]
     Active Substance: DALTEPARIN SODIUM
     Dosage: UNK

REACTIONS (1)
  - Device issue [Unknown]
